FAERS Safety Report 8096253-1 (Version None)
Quarter: 2012Q1

REPORT INFORMATION
  Report Type: 
  Country: None (occurrence: None)
  Receive Date: 20120129
  Receipt Date: 20111221
  Transmission Date: 20120608
  Serious: No
  Sender: FDA-Public Use
  Company Number: US-ABBOTT-11P-163-0885949-00

PATIENT
  Sex: Male

DRUGS (2)
  1. HUMIRA [Suspect]
     Indication: CROHN'S DISEASE
     Route: 058
     Dates: start: 20110901
  2. HUMIRA [Suspect]

REACTIONS (4)
  - NASOPHARYNGITIS [None]
  - COUGH [None]
  - MALAISE [None]
  - RHINORRHOEA [None]
